FAERS Safety Report 10638542 (Version 1)
Quarter: 2014Q4

REPORT INFORMATION
  Report Type: Spontaneous
  Country: DE (occurrence: None)
  Receive Date: 20141204
  Receipt Date: 20141204
  Transmission Date: 20150529
  Serious: Yes (Other)
  Sender: FDA-Public Use
  Company Number: DE-2012VAL000352

PATIENT
  Age: 28 Year
  Sex: Female

DRUGS (4)
  1. OXYTOCIN. [Suspect]
     Active Substance: OXYTOCIN
     Indication: UTERINE ATONY
  2. SULPROSTONE (SULPROSTONE) [Concomitant]
  3. MISOPROSTOL (MISOPROSTOL) [Concomitant]
  4. METHYLERGONOVINE MALEATE. [Suspect]
     Active Substance: METHYLERGONOVINE MALEATE
     Indication: UTERINE ATONY

REACTIONS (6)
  - Disseminated intravascular coagulation [None]
  - Drug ineffective [None]
  - Azotaemia [None]
  - Visual field defect [None]
  - Neurological symptom [None]
  - Haemolysis [None]
